FAERS Safety Report 4505587-6 (Version None)
Quarter: 2004Q4

REPORT INFORMATION
  Report Type: 
  Country: None (occurrence: None)
  Receive Date: 20041119
  Receipt Date: 20030113
  Transmission Date: 20050328
  Serious: No
  Sender: FDA-Public Use
  Company Number: US-GLAXOSMITHKLINE-A0392975A

PATIENT
  Age: 47 Year
  Sex: Male

DRUGS (1)
  1. LOTRONEX [Suspect]
     Indication: IRRITABLE BOWEL SYNDROME
     Dosage: 1MG TWICE PER DAY
     Route: 048
     Dates: start: 20001115

REACTIONS (4)
  - ABDOMINAL PAIN [None]
  - COLITIS [None]
  - FAECAL OCCULT BLOOD POSITIVE [None]
  - VOMITING [None]
